FAERS Safety Report 21975687 (Version 1)
Quarter: 2023Q1

REPORT INFORMATION
  Report Type: Spontaneous
  Country: US (occurrence: US)
  Receive Date: 20230210
  Receipt Date: 20230210
  Transmission Date: 20230418
  Serious: No
  Sender: FDA-Public Use
  Company Number: US-ABBVIE-4297078

PATIENT
  Sex: Male

DRUGS (2)
  1. LUPRON [Suspect]
     Active Substance: LEUPROLIDE ACETATE
     Indication: Product used for unknown indication
     Route: 065
  2. XTANDI [Suspect]
     Active Substance: ENZALUTAMIDE
     Indication: Lymphoma
     Route: 048
     Dates: start: 20220606

REACTIONS (6)
  - Memory impairment [Unknown]
  - Urticaria [Unknown]
  - Aphasia [Unknown]
  - Hot flush [Unknown]
  - Fatigue [Unknown]
  - Back pain [Unknown]
